FAERS Safety Report 20258602 (Version 2)
Quarter: 2022Q1

REPORT INFORMATION
  Report Type: Report from Study
  Country: IT (occurrence: IT)
  Receive Date: 20211230
  Receipt Date: 20220107
  Transmission Date: 20220423
  Serious: Yes (Hospitalization)
  Sender: FDA-Public Use
  Company Number: None

PATIENT
  Age: 15 Year
  Sex: Female
  Weight: 50 kg

DRUGS (3)
  1. OLANZAPINE [Suspect]
     Active Substance: OLANZAPINE
     Dosage: 80 MG, ABUSE / MISUSE
     Route: 048
     Dates: start: 20210121, end: 20210121
  2. CITALOPRAM [Suspect]
     Active Substance: CITALOPRAM HYDROBROMIDE
     Dosage: 220 MG, CITALOPRAM EG 20 MG TABLETS COATED WITH FILM, ABUSE / MISUSE
     Route: 048
     Dates: start: 20210121, end: 20210121
  3. XANAX [Concomitant]
     Active Substance: ALPRAZOLAM
     Dosage: 20 GTT, XANAX 0.75 MG / ML ORAL DROPS, SOLUTION
     Route: 048

REACTIONS (2)
  - Electrocardiogram QT prolonged [Recovering/Resolving]
  - Intentional overdose [Recovering/Resolving]

NARRATIVE: CASE EVENT DATE: 20210121
